FAERS Safety Report 8321275-2 (Version None)
Quarter: 2012Q2

REPORT INFORMATION
  Report Type: 
  Country: None (occurrence: None)
  Receive Date: 20120430
  Receipt Date: 20120427
  Transmission Date: 20120825
  Serious: Yes (Death)
  Sender: FDA-Public Use
  Company Number: FR-SANOFI-AVENTIS-2012SA010002

PATIENT
  Age: 65 Year
  Sex: Male

DRUGS (13)
  1. HYPERIUM [Suspect]
     Dates: start: 20100901
  2. TRAMADOL HCL [Concomitant]
  3. MOVIPREP [Concomitant]
     Indication: CONSTIPATION
  4. LOSARTAN POTASSIUM AND HYDROCHLOROTHIAZIDE [Suspect]
     Dosage: 100MG/25 MG
     Route: 048
     Dates: start: 20110201
  5. POTASSIUM CHLORIDE [Concomitant]
  6. PARACETAMOL [Concomitant]
     Indication: PAIN
  7. HYZAAR [Suspect]
     Route: 048
     Dates: start: 20100901, end: 20110201
  8. BUDESONIDE/FORMOTEROL [Suspect]
     Route: 055
     Dates: start: 20100901
  9. LOVENOX [Suspect]
     Route: 058
     Dates: start: 20111107, end: 20111125
  10. AMLODIPINE BESYLATE [Suspect]
     Route: 048
     Dates: start: 20101201
  11. SUNITINIB MALATE [Suspect]
     Dosage: 50 MG, CYCLE, ONCE DAILY, ORAL
     Dates: start: 20101020, end: 20111213
  12. LANSOPRAZOLE [Suspect]
     Route: 048
     Dates: start: 20100901
  13. SPASFON-LYOC [Concomitant]
     Indication: PAIN

REACTIONS (1)
  - AORTIC DISSECTION [None]
